FAERS Safety Report 4681458-X (Version None)
Quarter: 2005Q2

REPORT INFORMATION
  Report Type: 
  Country: None (occurrence: None)
  Receive Date: 20050601
  Receipt Date: 20050513
  Transmission Date: 20051028
  Serious: Yes (Other)
  Sender: FDA-Public Use
  Company Number: USA050597990

PATIENT
  Age: 49 Year
  Sex: Female

DRUGS (3)
  1. EVISTA [Suspect]
     Indication: OSTEOPOROSIS
  2. FORTEO [Suspect]
     Indication: BONE DISORDER
     Dosage: 20 UG
     Dates: start: 20050505
  3. ACTONEL [Concomitant]

REACTIONS (9)
  - ACCIDENT AT WORK [None]
  - ARTHROPATHY [None]
  - DRUG INEFFECTIVE [None]
  - FALL [None]
  - INJECTION SITE ERYTHEMA [None]
  - INTERVERTEBRAL DISC PROTRUSION [None]
  - LIMB INJURY [None]
  - MENISCUS LESION [None]
  - PHARMACEUTICAL PRODUCT COMPLAINT [None]
